FAERS Safety Report 24732040 (Version 2)
Quarter: 2024Q4

REPORT INFORMATION
  Report Type: Spontaneous
  Country: US (occurrence: US)
  Receive Date: 20241213
  Receipt Date: 20241230
  Transmission Date: 20250115
  Serious: No
  Sender: METHAPHARM INC.
  Company Number: US-METHAPHARM-2024-US-000044

PATIENT
  Age: 23 Year
  Sex: Male

DRUGS (1)
  1. PROVOCHOLINE [Suspect]
     Active Substance: METHACHOLINE CHLORIDE
     Indication: Pulmonary function challenge test

REACTIONS (1)
  - Therapeutic response unexpected [Unknown]
